FAERS Safety Report 9516669 (Version 2)
Quarter: 2014Q1

REPORT INFORMATION
  Report Type: Spontaneous
  Country: US (occurrence: None)
  Receive Date: 20130305
  Receipt Date: 20140306
  Transmission Date: 20141002
  Serious: Yes (Other)
  Sender: FDA-Public Use
  Company Number: 163-21880-12120621

PATIENT
  Age: 54 Year
  Sex: Male
  Weight: 88 kg

DRUGS (5)
  1. REVLIMID (LENALIDOMIDE) (10 MILLIGRAM, CAPSULES) [Suspect]
     Indication: PLASMA CELL MYELOMA
     Dosage: 10 MG, 21 IN 21 D, PO
     Route: 048
     Dates: start: 200901
  2. ACYCLOVIR(ACICLOVIR)(CAPSULES) [Concomitant]
  3. BACTRIM(BACTRIM)(UNKNOWN) [Concomitant]
  4. LOVENOX(HEPARIN-FRACTION, SODIUM SALT)(UNKNOWN) [Concomitant]
  5. VALIUM(DIAZEPAM)(TABLETS) [Concomitant]

REACTIONS (4)
  - Thrombosis [None]
  - Back pain [None]
  - Pain in extremity [None]
  - Gait disturbance [None]
